FAERS Safety Report 21566861 (Version 1)
Quarter: 2022Q4

REPORT INFORMATION
  Report Type: Spontaneous
  Country: US (occurrence: None)
  Receive Date: 20221107
  Receipt Date: 20221107
  Transmission Date: 20230113
  Serious: Yes (unspecified)
  Sender: FDA-Public Use
  Company Number: None

PATIENT
  Age: 37 Year
  Sex: Female
  Weight: 135 kg

DRUGS (6)
  1. SAXENDA [Suspect]
     Active Substance: LIRAGLUTIDE
     Indication: Weight decreased
     Dosage: OTHER ROUTE : INTO THE BELLY;?
     Route: 050
     Dates: start: 20221004, end: 20221023
  2. SERTRALINE [Concomitant]
     Active Substance: SERTRALINE HYDROCHLORIDE
  3. CELECOXIB [Concomitant]
     Active Substance: CELECOXIB
  4. PHENTERMINE [Concomitant]
     Active Substance: PHENTERMINE
  5. OMEPRAZOLE [Concomitant]
     Active Substance: OMEPRAZOLE
  6. BIOTIN [Concomitant]
     Active Substance: BIOTIN

REACTIONS (5)
  - Fatigue [None]
  - Groin pain [None]
  - Back pain [None]
  - Swelling [None]
  - Ear congestion [None]

NARRATIVE: CASE EVENT DATE: 20221021
